FAERS Safety Report 8451984 (Version 2)
Quarter: 2013Q4

REPORT INFORMATION
  Report Type: Spontaneous
  Country: US (occurrence: US)
  Receive Date: 20120309
  Receipt Date: 20131107
  Transmission Date: 20140711
  Serious: Yes (Other)
  Sender: FDA-Public Use
  Company Number: US-FRI-1000015369

PATIENT
  Age: 63 Year
  Sex: Female

DRUGS (9)
  1. ARMOUR THYROID [Suspect]
     Indication: HYPOTHYROIDISM
     Dosage: 120 MG
     Route: 048
     Dates: start: 20100613, end: 20100727
  2. ARMOUR THYROID [Suspect]
     Dosage: 15 MG
     Route: 048
     Dates: start: 20100813, end: 20100813
  3. ARMOUR THYROID [Suspect]
     Indication: HYPOTHYROIDISM
     Dosage: 30 MG
     Route: 048
     Dates: start: 20100814, end: 20100816
  4. ARMOUR THYROID [Suspect]
     Dosage: 15 MG
     Route: 048
     Dates: start: 20100817, end: 20100819
  5. ARMOUR THYROID [Suspect]
     Dosage: 30 MG
     Route: 048
     Dates: start: 20100820, end: 20100823
  6. ARMOUR THYROID [Suspect]
     Dosage: 15 MG
     Route: 048
     Dates: start: 20100824, end: 20100826
  7. ARMOUR THYROID [Suspect]
     Dosage: 30 MG
     Route: 048
     Dates: start: 20100827, end: 20100827
  8. ARMOUR THYROID [Suspect]
     Dosage: 15 MG
     Route: 048
     Dates: start: 20100828, end: 20100831
  9. ARMOUR THYROID [Suspect]
     Dosage: 75-90 MG
     Route: 048
     Dates: end: 201304

REACTIONS (14)
  - Suicidal ideation [Recovered/Resolved]
  - Insomnia [Unknown]
  - Cold sweat [Unknown]
  - Weight decreased [Unknown]
  - Hyperhidrosis [Unknown]
  - Depression [Unknown]
  - Anxiety [Unknown]
  - Panic attack [Unknown]
  - Decreased appetite [Unknown]
  - Myalgia [Unknown]
  - Hyperthyroidism [Unknown]
  - Hypothyroidism [Unknown]
  - Drug ineffective [Unknown]
  - Feeling jittery [Unknown]
